FAERS Safety Report 23645074 (Version 1)
Quarter: 2024Q1

REPORT INFORMATION
  Report Type: Spontaneous
  Country: US (occurrence: US)
  Receive Date: 20240318
  Receipt Date: 20240318
  Transmission Date: 20240409
  Serious: No
  Sender: FDA-Public Use
  Company Number: US-SMITH AND NEPHEW, INC-2023SMT00068

PATIENT
  Sex: Male
  Weight: 108.84 kg

DRUGS (11)
  1. COLLAGENASE SANTYL [Suspect]
     Active Substance: COLLAGENASE CLOSTRIDIUM HISTOLYTICUM
     Indication: Skin ulcer
     Dosage: APPLY NICKEL THICK AND COVER WITH A SALINE MOISTENED GAUZE, ONLY IF WOUND IS DRY; 1X/DAY FOR 30 DAYS
     Route: 061
     Dates: start: 20230818
  2. DAKINS FULL [Concomitant]
     Active Substance: SODIUM HYPOCHLORITE
     Dosage: USING BUT NOT EVERY DAY; SOAK FOR 15-20 MIN
  3. LISINOPRIL AND HYDROCHLOROTHIAZIDE [Concomitant]
     Active Substance: HYDROCHLOROTHIAZIDE\LISINOPRIL
     Dosage: 1 TABLETS, 1X/DAY
     Route: 048
  4. PRAVASTATIN [Concomitant]
     Active Substance: PRAVASTATIN
     Dosage: 40 MG, 1X/DAY
     Route: 048
  5. METOPROLOL SUCCINATE [Concomitant]
     Active Substance: METOPROLOL SUCCINATE
     Dosage: 100 MG, 1X/DAY
     Route: 048
  6. ELIQUIS [Concomitant]
     Active Substance: APIXABAN
     Dosage: 10 MG, 1X/DAY
     Route: 048
  7. ALPROSTADIL [Concomitant]
     Active Substance: ALPROSTADIL
     Dosage: 20 ?G, INTERCAVERNOSAL, NO MORE THAN 3X/WEEK
  8. FLUTICASONE PROPIONATE [Concomitant]
     Active Substance: FLUTICASONE PROPIONATE
     Dosage: 2 SPRAYS, IN EACH NOSTRIL, 1X/DAY
     Route: 045
  9. BUPROPION HYDROCHLORIDE XL [Concomitant]
     Active Substance: BUPROPION HYDROCHLORIDE
     Dosage: 150 MG, 1X/DAY
     Route: 048
  10. HONEY [Concomitant]
     Active Substance: HONEY
     Dosage: UNK, EVERY 48 HOURS
  11. SILVERCEL [Concomitant]

REACTIONS (5)
  - Oedema [Not Recovered/Not Resolved]
  - Wound complication [Not Recovered/Not Resolved]
  - Wound infection [Not Recovered/Not Resolved]
  - Drug ineffective [Not Recovered/Not Resolved]
  - Product administration error [Recovered/Resolved]

NARRATIVE: CASE EVENT DATE: 20230101
